FAERS Safety Report 24684762 (Version 1)
Quarter: 2024Q4

REPORT INFORMATION
  Report Type: Spontaneous
  Country: IT (occurrence: IT)
  Receive Date: 20241202
  Receipt Date: 20241202
  Transmission Date: 20250115
  Serious: Yes (Hospitalization)
  Sender: CHEPLAPHARM
  Company Number: None

PATIENT
  Age: 75 Year
  Sex: Male
  Weight: 79 kg

DRUGS (1)
  1. CAPECITABINE [Suspect]
     Active Substance: CAPECITABINE
     Indication: Adenocarcinoma of colon
     Dosage: 4 CAPECITABINE 500 MG TABLETS WITHIN 30 MINUTES OF BREAKFAST AND 4 CAPECITABINE 500 MG TABLETS WI...
     Route: 048
     Dates: start: 20240615, end: 20240628

REACTIONS (1)
  - Cytotoxic lesions of corpus callosum [Recovering/Resolving]

NARRATIVE: CASE EVENT DATE: 20240704
